FAERS Safety Report 4948042-1 (Version None)
Quarter: 2006Q1

REPORT INFORMATION
  Report Type: 
  Country: None (occurrence: None)
  Receive Date: 20060320
  Receipt Date: 20050414
  Transmission Date: 20060701
  Serious: Yes (Hospitalization)
  Sender: FDA-Public Use
  Company Number: US-MERCK-0504USA02413

PATIENT
  Age: 49 Year
  Sex: Male
  Weight: 111 kg

DRUGS (2)
  1. VIOXX [Suspect]
     Indication: OSTEOARTHRITIS
     Route: 048
     Dates: start: 20000216
  2. VIOXX [Suspect]
     Indication: TENOSYNOVITIS
     Route: 048
     Dates: start: 20000216

REACTIONS (18)
  - ARTHRALGIA [None]
  - BLOOD PRESSURE INCREASED [None]
  - CHEST PAIN [None]
  - COLD SWEAT [None]
  - CORONARY ARTERY DISEASE [None]
  - CORONARY ARTERY STENOSIS [None]
  - DRUG INEFFECTIVE [None]
  - ELECTROCARDIOGRAM ST SEGMENT DEPRESSION [None]
  - ELECTROCARDIOGRAM ST-T CHANGE [None]
  - HYPERLIPIDAEMIA [None]
  - INJURY [None]
  - ISCHAEMIA [None]
  - MYALGIA [None]
  - NERVOUS SYSTEM DISORDER [None]
  - PALLOR [None]
  - SCLERAL HAEMORRHAGE [None]
  - SHOCK [None]
  - SQUAMOUS CELL CARCINOMA [None]
